FAERS Safety Report 14638606 (Version 1)
Quarter: 2018Q1

REPORT INFORMATION
  Report Type: Spontaneous
  Country: US (occurrence: US)
  Receive Date: 20180314
  Receipt Date: 20180314
  Transmission Date: 20180509
  Serious: No
  Sender: FDA-Public Use
  Company Number: US-VIFOR (INTERNATIONAL) INC.-VIT-2016-03535

PATIENT
  Sex: Male

DRUGS (22)
  1. LANTUS [Concomitant]
     Active Substance: INSULIN GLARGINE
  2. ALBUTEROL. [Concomitant]
     Active Substance: ALBUTEROL
  3. DILTIAZEM HYDROCHLORIDE. [Concomitant]
     Active Substance: DILTIAZEM HYDROCHLORIDE
  4. DRISDOL [Concomitant]
     Active Substance: ERGOCALCIFEROL
  5. DALIRESP [Concomitant]
     Active Substance: ROFLUMILAST
  6. LUCENTIS [Concomitant]
     Active Substance: RANIBIZUMAB
  7. COENZYME Q10 [Concomitant]
     Active Substance: UBIDECARENONE
  8. ASCORBIC ACID/CHONDROITIN SULFATE SODIUM/GLUCOSAMINE SULFATE/MANGANESE SULFATE [Concomitant]
  9. LABETALOL HYDROCHLORIDE. [Concomitant]
     Active Substance: LABETALOL HYDROCHLORIDE
  10. SIMVASTATIN. [Concomitant]
     Active Substance: SIMVASTATIN
  11. PARACETAMOL/HYDROCODONE BITARTRATE [Concomitant]
  12. OMEPRAZOLE. [Concomitant]
     Active Substance: OMEPRAZOLE
  13. TUDORZA PRESSAIR [Concomitant]
     Active Substance: ACLIDINIUM BROMIDE
  14. VELTASSA [Suspect]
     Active Substance: PATIROMER
     Indication: HYPERKALAEMIA
     Route: 048
     Dates: start: 20160414
  15. SYMBICORT [Concomitant]
     Active Substance: BUDESONIDE\FORMOTEROL FUMARATE DIHYDRATE
  16. ACETYLSALICYLIC ACID [Concomitant]
     Active Substance: ASPIRIN
  17. CINNAMON. [Concomitant]
     Active Substance: CINNAMON
  18. NOVOLOG [Concomitant]
     Active Substance: INSULIN ASPART
  19. RANITIDINE HYDROCHLORIDE. [Concomitant]
     Active Substance: RANITIDINE HYDROCHLORIDE
  20. COLECALCIFEROL [Concomitant]
     Active Substance: CHOLECALCIFEROL
  21. LOSARTAN POTASSIUM. [Concomitant]
     Active Substance: LOSARTAN POTASSIUM
  22. FUROSEMIDE. [Concomitant]
     Active Substance: FUROSEMIDE

REACTIONS (2)
  - Blood glucose increased [Unknown]
  - Drug dose omission [Unknown]

NARRATIVE: CASE EVENT DATE: 2016
